FAERS Safety Report 24233170 (Version 1)
Quarter: 2024Q3

REPORT INFORMATION
  Report Type: Spontaneous
  Country: CN (occurrence: CN)
  Receive Date: 20240821
  Receipt Date: 20240821
  Transmission Date: 20241016
  Serious: Yes (Life-Threatening)
  Sender: PFIZER
  Company Number: CN-PFIZER INC-PV202400107981

PATIENT
  Age: 30 Year
  Sex: Female
  Weight: 70 kg

DRUGS (2)
  1. HEMABATE [Suspect]
     Active Substance: CARBOPROST TROMETHAMINE
     Indication: Uterine hypotonus
     Dosage: 250 UG, 1X/DAY
     Route: 019
     Dates: start: 20240818, end: 20240818
  2. ERGONOVINE MALEATE [Concomitant]
     Active Substance: ERGONOVINE MALEATE
     Indication: Uterine hypotonus
     Dosage: 0.2 MG, 1X/DAY
     Route: 019
     Dates: start: 20240818, end: 20240818

REACTIONS (2)
  - Hypersensitivity [Recovering/Resolving]
  - Off label use [Unknown]

NARRATIVE: CASE EVENT DATE: 20240818
